FAERS Safety Report 6321731-2 (Version None)
Quarter: 2009Q3

REPORT INFORMATION
  Report Type: 
  Country: None (occurrence: None)
  Receive Date: 20090824
  Receipt Date: 20090814
  Transmission Date: 20100115
  Serious: Yes (Life-Threatening, Hospitalization)
  Sender: FDA-Public Use
  Company Number: FR-AMGEN-US351107

PATIENT
  Sex: Female

DRUGS (6)
  1. ENBREL [Suspect]
     Indication: RHEUMATOID ARTHRITIS
     Route: 058
     Dates: start: 20000101, end: 20090301
  2. CORTANCYL [Suspect]
     Indication: RHEUMATOID ARTHRITIS
     Route: 048
  3. DEROXAT [Concomitant]
     Dosage: UNKNOWN
     Route: 065
  4. INEXIUM [Concomitant]
     Dosage: UNKNOWN
     Route: 065
  5. DIFFU K [Concomitant]
     Dosage: UNKNOWN
     Route: 065
  6. CARDENSIEL [Concomitant]
     Dosage: UNKNOWN
     Route: 065

REACTIONS (14)
  - ATELECTASIS [None]
  - CANDIDIASIS [None]
  - CHOLESTASIS [None]
  - CYTOMEGALOVIRUS INFECTION [None]
  - DISSEMINATED INTRAVASCULAR COAGULATION [None]
  - ESCHERICHIA INFECTION [None]
  - GASTROENTERITIS [None]
  - MULTI-ORGAN FAILURE [None]
  - PLEURAL EFFUSION [None]
  - PNEUMONIA [None]
  - PYELONEPHRITIS ACUTE [None]
  - RENAL FAILURE ACUTE [None]
  - SEPTIC SHOCK [None]
  - THROMBOCYTOSIS [None]
